FAERS Safety Report 9312780 (Version 2)
Quarter: 2013Q3

REPORT INFORMATION
  Report Type: Spontaneous
  Country: DE (occurrence: DE)
  Receive Date: 20130528
  Receipt Date: 20130721
  Transmission Date: 20140515
  Serious: No
  Sender: FDA-Public Use
  Company Number: DE-009507513-1305DEU015420

PATIENT
  Age: 26 Year
  Sex: Male

DRUGS (3)
  1. SYCREST [Suspect]
     Dosage: 20MG/DAY
     Route: 048
     Dates: start: 20130413
  2. LITHIUM [Concomitant]
     Indication: BIPOLAR I DISORDER
     Dosage: 1125 MG/DAY
     Route: 048
  3. ATOSIL [Concomitant]
     Dosage: 50MG/DAY
     Route: 048

REACTIONS (2)
  - Swollen tongue [Recovered/Resolved]
  - Hypoaesthesia oral [Recovered/Resolved]
